FAERS Safety Report 4569689-0 (Version None)
Quarter: 2005Q1

REPORT INFORMATION
  Report Type: 
  Country: None (occurrence: None)
  Receive Date: 20050201
  Receipt Date: 20050117
  Transmission Date: 20050727
  Serious: No
  Sender: FDA-Public Use
  Company Number: 9848

PATIENT
  Sex: 0

DRUGS (5)
  1. PACLITAXEL [Suspect]
     Indication: NON-SMALL CELL LUNG CANCER
     Dosage: 210 MG/M2 PER_CYCLE IV
     Route: 042
  2. CARBOPLATIN [Suspect]
     Indication: NON-SMALL CELL LUNG CANCER
  3. DEXAMETHASONE [Concomitant]
  4. DIPHENHYDRAMINE HCL [Concomitant]
  5. RANITIDINE [Concomitant]

REACTIONS (1)
  - DUODENAL ULCER HAEMORRHAGE [None]
